FAERS Safety Report 10563498 (Version 2)
Quarter: 2014Q4

REPORT INFORMATION
  Report Type: Spontaneous
  Country: SE (occurrence: SE)
  Receive Date: 20141104
  Receipt Date: 20141205
  Transmission Date: 20150529
  Serious: Yes (Hospitalization)
  Sender: FDA-Public Use
  Company Number: SE-RB PHARMACEUTICALS LIMITED-RB-72888-2014

PATIENT
  Age: 18 Month
  Sex: Male

DRUGS (1)
  1. SUBOXONE [Suspect]
     Active Substance: BUPRENORPHINE HYDROCHLORIDE\NALOXONE HYDROCHLORIDE
     Dosage: APPROXIMATELY 2 MG, ONE TIME DOSE
     Route: 048
     Dates: start: 20130621, end: 20130621

REACTIONS (5)
  - Poisoning [Recovered/Resolved]
  - Accidental exposure to product [Recovered/Resolved]
  - Fatigue [Recovered/Resolved]
  - Miosis [Recovered/Resolved]
  - Somnolence [Recovered/Resolved]

NARRATIVE: CASE EVENT DATE: 20130621
